FAERS Safety Report 9556122 (Version 1)
Quarter: 2013Q3

REPORT INFORMATION
  Report Type: Spontaneous
  Country: US (occurrence: None)
  Receive Date: 20130724
  Receipt Date: 20130724
  Transmission Date: 20140515
  Serious: No
  Sender: FDA-Public Use
  Company Number: PHEH2013US006454

PATIENT
  Age: 61 Year
  Sex: Female
  Weight: 84.8 kg

DRUGS (8)
  1. GILENYA (FINGOLIMOD) CAPSULE, 0.5MG [Suspect]
     Indication: MULTIPLE SCLEROSIS
     Route: 048
     Dates: start: 20130306
  2. PROZAC (FLUOXETINE HYDROCHLORIDE) [Concomitant]
  3. ADDERALL XR (AMFETAMINE ASPARTATE, AMFETAMINE SULFATE, DEXAMFETAMINE SACCHARATE, DEXAMFETAMINE SULFATE) [Concomitant]
  4. DANTRIUM (DANTROLENE SODIUM) [Concomitant]
  5. OXYBUTYN (OXYBUTYNIN HYDROCHLORIDE) [Concomitant]
  6. EVISTA (RALOXIFENE HYDROCHLORIDE) [Concomitant]
  7. SYNTHROID (LEVOTHYROXINE SODIUM) [Concomitant]
  8. KLONOPIN (CLONAZEPAM) [Concomitant]

REACTIONS (2)
  - Urticaria [None]
  - Pruritus [None]
